FAERS Safety Report 4997392-1 (Version None)
Quarter: 2006Q1

REPORT INFORMATION
  Report Type: 
  Country: None (occurrence: None)
  Receive Date: 20060315
  Receipt Date: 20051120
  Transmission Date: 20060701
  Serious: Yes (Other)
  Sender: FDA-Public Use
  Company Number: 425650

PATIENT
  Sex: Female

DRUGS (1)
  1. BONIVA [Suspect]
     Dates: start: 20050615

REACTIONS (4)
  - ABDOMINAL PAIN [None]
  - HEADACHE [None]
  - HEPATIC PAIN [None]
  - NAUSEA [None]
